FAERS Safety Report 11468113 (Version 2)
Quarter: 2015Q4

REPORT INFORMATION
  Report Type: Spontaneous
  Country: US (occurrence: US)
  Receive Date: 20150908
  Receipt Date: 20151118
  Transmission Date: 20160304
  Serious: Yes (Hospitalization)
  Sender: FDA-Public Use
  Company Number: US-UNICHEM LABORATORIES LIMITED-UCM201508-000725

PATIENT
  Age: 88 Year
  Sex: Female

DRUGS (1)
  1. HYDROCHLOROTHIAZIDE. [Suspect]
     Active Substance: HYDROCHLOROTHIAZIDE
     Route: 048

REACTIONS (5)
  - Urine output decreased [Unknown]
  - Visual acuity reduced [Not Recovered/Not Resolved]
  - Swelling [Unknown]
  - Emotional distress [Unknown]
  - Pallor [Unknown]

NARRATIVE: CASE EVENT DATE: 201506
